FAERS Safety Report 15764094 (Version 1)
Quarter: 2018Q4

REPORT INFORMATION
  Report Type: Spontaneous
  Country: FR (occurrence: FR)
  Receive Date: 20181227
  Receipt Date: 20181227
  Transmission Date: 20190205
  Serious: Yes (Other)
  Sender: FDA-Public Use
  Company Number: FR-AUROBINDO-AUR-APL-2018-062401

PATIENT
  Age: 55 Year
  Sex: Male

DRUGS (4)
  1. ONDANSETRON [Suspect]
     Active Substance: ONDANSETRON
     Indication: ANTIEMETIC SUPPORTIVE CARE
     Dosage: 16 MILLIGRAM, ONCE A DAY,MATIN ET SOIR
     Route: 048
     Dates: start: 20181120, end: 20181120
  2. PREDNISOLONE. [Suspect]
     Active Substance: PREDNISOLONE
     Indication: ALLERGY PROPHYLAXIS
     Dosage: 80 MILLIGRAM, CYCLICAL, MATIN
     Route: 048
     Dates: start: 20181120, end: 20181120
  3. OXALIPLATINE ACCORD [Suspect]
     Active Substance: OXALIPLATIN
     Indication: COLORECTAL ADENOCARCINOMA
     Dosage: 170 MILLIGRAM, CYCLICAL
     Route: 042
     Dates: start: 20181120, end: 20181120
  4. EMEND [Suspect]
     Active Substance: APREPITANT
     Indication: ANTIEMETIC SUPPORTIVE CARE
     Dosage: LE MATIN, LE 20/11/18 : 125MG, LE 21/11/18 : 80MG, 22/11/18 : 80 MG
     Route: 048
     Dates: start: 20181120, end: 20181122

REACTIONS (4)
  - Pruritus [Recovered/Resolved]
  - Hypersensitivity [Recovered/Resolved]
  - Erythema [Recovered/Resolved]
  - Palmar erythema [Recovered/Resolved]

NARRATIVE: CASE EVENT DATE: 20181120
